FAERS Safety Report 4302072-1 (Version None)
Quarter: 2004Q1

REPORT INFORMATION
  Report Type: 
  Country: None (occurrence: None)
  Receive Date: 20040220
  Receipt Date: 20040210
  Transmission Date: 20041129
  Serious: Yes (Hospitalization)
  Sender: FDA-Public Use
  Company Number: 04P-056-0250276-00

PATIENT
  Sex: 0

DRUGS (2)
  1. DEPAKENE [Suspect]
     Indication: EPILEPSY
  2. TIANEPTINE [Suspect]
     Dosage: 12.5 MG, 1 IN 1 D, PER ORAL
     Route: 048

REACTIONS (3)
  - DRUG INTERACTION [None]
  - ENCEPHALOPATHY [None]
  - HYPERAMMONAEMIA [None]
